FAERS Safety Report 20322529 (Version 1)
Quarter: 2022Q1

REPORT INFORMATION
  Report Type: Spontaneous
  Country: US (occurrence: US)
  Receive Date: 20220111
  Receipt Date: 20220111
  Transmission Date: 20220423
  Serious: No
  Sender: FDA-Public Use
  Company Number: US-CELGENE-USA-20220102044

PATIENT
  Sex: Female
  Weight: 59.020 kg

DRUGS (1)
  1. REVLIMID [Suspect]
     Active Substance: LENALIDOMIDE
     Indication: Plasma cell myeloma
     Dosage: 18.75 MILLIGRAM
     Route: 048
     Dates: start: 20211016

REACTIONS (1)
  - Muscle spasms [Recovered/Resolved]
